FAERS Safety Report 4592218-2 (Version None)
Quarter: 2005Q1

REPORT INFORMATION
  Report Type: 
  Country: None (occurrence: None)
  Receive Date: 20050228
  Receipt Date: 20050216
  Transmission Date: 20050727
  Serious: Yes (Hospitalization)
  Sender: FDA-Public Use
  Company Number: JP-JNJFOC-20050200665

PATIENT
  Sex: Male
  Weight: 56.5 kg

DRUGS (10)
  1. REMICADE [Suspect]
     Route: 042
  2. REMICADE [Suspect]
     Dosage: THIS WAS THE THIRD INFUSION.
     Route: 042
  3. REMICADE [Suspect]
     Indication: RHEUMATOID ARTHRITIS
     Route: 042
  4. METHOTREXATE [Concomitant]
     Route: 049
  5. METHOTREXATE [Concomitant]
     Route: 049
  6. PREDNISOLONE [Concomitant]
     Route: 049
  7. VOLTAREN [Concomitant]
  8. FOLIAMIN [Concomitant]
     Route: 049
  9. CYTOTEC [Concomitant]
     Indication: GASTRIC ULCER
     Route: 049
  10. TAKEPRON [Concomitant]
     Indication: GASTRIC ULCER
     Route: 049

REACTIONS (9)
  - ANTINUCLEAR ANTIBODY POSITIVE [None]
  - APHASIA [None]
  - CEREBRAL INFARCTION [None]
  - DISORIENTATION [None]
  - ENCEPHALITIS HERPES [None]
  - HYPOAESTHESIA [None]
  - LOSS OF CONSCIOUSNESS [None]
  - LUPUS-LIKE SYNDROME [None]
  - NEPHROTIC SYNDROME [None]
